FAERS Safety Report 7474051-7 (Version None)
Quarter: 2011Q2

REPORT INFORMATION
  Report Type: 
  Country: None (occurrence: None)
  Receive Date: 20110511
  Receipt Date: 20110207
  Transmission Date: 20111010
  Serious: Yes (Other)
  Sender: FDA-Public Use
  Company Number: PHHY2011US10239

PATIENT
  Sex: Female

DRUGS (3)
  1. RECLAST [Suspect]
     Dosage: 5 MG, UNK
     Route: 042
  2. CALCIUM [Concomitant]
     Dosage: UNK
  3. VITAMIN D [Concomitant]
     Dosage: UNK

REACTIONS (5)
  - ARTHRALGIA [None]
  - DIARRHOEA [None]
  - ANKLE FRACTURE [None]
  - BONE PAIN [None]
  - FALL [None]
